FAERS Safety Report 9563234 (Version 2)
Quarter: 2013Q4

REPORT INFORMATION
  Report Type: Spontaneous
  Country: JP (occurrence: JP)
  Receive Date: 20130927
  Receipt Date: 20131029
  Transmission Date: 20140711
  Serious: Yes (Death, Hospitalization)
  Sender: FDA-Public Use
  Company Number: JP-B.I. PHARMACEUTICALS,INC./RIDGEFIELD-2013-BI-30046NB

PATIENT
  Age: 52 Year
  Sex: Male
  Weight: 72 kg

DRUGS (6)
  1. TRAZENTA [Suspect]
     Indication: TYPE 2 DIABETES MELLITUS
     Dosage: 5 MG
     Route: 048
     Dates: start: 20121011, end: 20130806
  2. CRESTOR / ROSUVASTATIN CALCIUM [Concomitant]
     Indication: HYPERCHOLESTEROLAEMIA
     Dosage: DAILY DOSE: 1DF
     Route: 048
     Dates: start: 20120222, end: 20130806
  3. METGLUCO / METFORMIN HYDROCHLORIDE [Concomitant]
     Indication: TYPE 2 DIABETES MELLITUS
     Dosage: 500 MG
     Route: 048
     Dates: start: 20130327, end: 20130806
  4. METHYCOOL / MECOBALAMIN [Concomitant]
     Indication: RADICULOPATHY
     Dosage: DAILY DOSE: 3DF
     Route: 048
     Dates: start: 20130620, end: 20130806
  5. LOXONIN / LOXOPROFEN SODIUM HYDRATE [Concomitant]
     Indication: RADICULOPATHY
     Dosage: DAILY DOSE: 3DF
     Route: 048
     Dates: start: 20130620, end: 20130806
  6. REBAMIPIDE [Concomitant]
     Indication: RADICULOPATHY
     Dosage: DAILY DOSE: 3DF
     Route: 048
     Dates: start: 20130620, end: 20130806

REACTIONS (2)
  - Pancreatitis acute [Fatal]
  - Disseminated intravascular coagulation [Fatal]
